FAERS Safety Report 12639967 (Version 1)
Quarter: 2016Q3

REPORT INFORMATION
  Report Type: Spontaneous
  Country: US (occurrence: None)
  Receive Date: 20160809
  Receipt Date: 20160809
  Transmission Date: 20161109
  Serious: No
  Sender: FDA-Public Use
  Company Number: None

PATIENT
  Age: 16 Year
  Sex: Male

DRUGS (1)
  1. HUMIRA [Suspect]
     Active Substance: ADALIMUMAB
     Indication: MALAISE
     Dosage: EVERY OTHER WEEK
     Route: 058
     Dates: start: 20160404

REACTIONS (3)
  - Joint stiffness [None]
  - Hepatic enzyme increased [None]
  - Sensation of foreign body [None]
